FAERS Safety Report 20852576 (Version 1)
Quarter: 2022Q2

REPORT INFORMATION
  Report Type: Spontaneous
  Country: JP (occurrence: JP)
  Receive Date: 20220520
  Receipt Date: 20220520
  Transmission Date: 20220721
  Serious: Yes (Other)
  Sender: FDA-Public Use
  Company Number: JP-BION-010778

PATIENT
  Age: 66 Year
  Sex: Male

DRUGS (1)
  1. ZONISAMIDE [Suspect]
     Active Substance: ZONISAMIDE
     Indication: Hypoaesthesia

REACTIONS (4)
  - Drug reaction with eosinophilia and systemic symptoms [Recovered/Resolved]
  - Cytomegalovirus infection reactivation [Unknown]
  - Human herpesvirus 6 infection reactivation [Unknown]
  - Product use in unapproved indication [Not Recovered/Not Resolved]
